FAERS Safety Report 5798530-3 (Version None)
Quarter: 2008Q3

REPORT INFORMATION
  Report Type: 
  Country: None (occurrence: None)
  Receive Date: 20080702
  Receipt Date: 20080624
  Transmission Date: 20090109
  Serious: Yes (Other)
  Sender: FDA-Public Use
  Company Number: GB-MERCK-0806GBR00105

PATIENT
  Age: 60 Year
  Sex: Female
  Weight: 63 kg

DRUGS (4)
  1. FOSAMAX [Suspect]
     Indication: OSTEOPOROSIS
     Route: 048
     Dates: start: 20080512, end: 20080606
  2. CALCIUM CARBONATE AND CHOLECALCIFEROL [Concomitant]
     Route: 065
     Dates: end: 20080512
  3. LEVOTHYROXINE SODIUM [Concomitant]
     Route: 065
     Dates: start: 20070114
  4. LISINOPRIL [Concomitant]
     Route: 065
     Dates: start: 20080508

REACTIONS (2)
  - BACK PAIN [None]
  - MALAISE [None]
